FAERS Safety Report 9157827 (Version 1)
Quarter: 2013Q1

REPORT INFORMATION
  Report Type: Spontaneous
  Country: US (occurrence: None)
  Receive Date: 20130311
  Receipt Date: 20130311
  Transmission Date: 20140127
  Serious: Yes (Other)
  Sender: FDA-Public Use
  Company Number: None

PATIENT
  Age: 64 Year
  Sex: Female
  Weight: 53.07 kg

DRUGS (1)
  1. ADDERALL 20 MG TABLET [Suspect]
     Indication: ATTENTION DEFICIT/HYPERACTIVITY DISORDER
     Route: 048
     Dates: start: 20130307, end: 20130401

REACTIONS (4)
  - Drug ineffective [None]
  - Incorrect dose administered [None]
  - Fear [None]
  - Product substitution issue [None]
